FAERS Safety Report 16206079 (Version 1)
Quarter: 2019Q2

REPORT INFORMATION
  Report Type: Spontaneous
  Country: US (occurrence: US)
  Receive Date: 20190417
  Receipt Date: 20190417
  Transmission Date: 20190711
  Serious: Yes (Hospitalization, Other)
  Sender: FDA-Public Use
  Company Number: US-CORCEPT THERAPEUTICS INC.-US-2019CRT000385

PATIENT

DRUGS (1)
  1. KORLYM [Suspect]
     Active Substance: MIFEPRISTONE
     Indication: CUSHING^S SYNDROME
     Dosage: UNK
     Route: 048
     Dates: start: 20150630, end: 201902

REACTIONS (4)
  - Fatigue [Unknown]
  - Endometrial adenocarcinoma [Unknown]
  - Vaginal haemorrhage [Unknown]
  - Endometriosis [Unknown]

NARRATIVE: CASE EVENT DATE: 201902
